FAERS Safety Report 5839713 (Version 6)
Quarter: 2013Q1

REPORT INFORMATION
  Report Type: Report from Study
  Country: HK (occurrence: HK)
  Receive Date: 20050719
  Receipt Date: 20130320
  Transmission Date: 20140127
  Serious: Yes (Death, Hospitalization, Other)
  Sender: FDA-Public Use
  Company Number: HK-BRISTOL-MYERS SQUIBB COMPANY-13033758

PATIENT
  Age: 34 Year
  Sex: Male

DRUGS (5)
  1. CETUXIMAB [Suspect]
     Indication: COLORECTAL CANCER METASTATIC
     Route: 042
     Dates: start: 20050628, end: 20050628
  2. IRINOTECAN [Suspect]
     Indication: COLORECTAL CANCER METASTATIC
     Route: 042
     Dates: start: 20050628, end: 20050628
  3. CODEINE PHOSPHATE [Concomitant]
     Dates: start: 20050628
  4. METOCLOPRAMIDE HCL [Concomitant]
     Dates: start: 20050628
  5. DEXAMETHASONE [Concomitant]
     Dates: start: 20050628

REACTIONS (4)
  - Lung infiltration [Not Recovered/Not Resolved]
  - Malignant neoplasm progression [Fatal]
  - Hypersensitivity [Unknown]
  - Hypotension [Recovered/Resolved]
